FAERS Safety Report 8165742-3 (Version None)
Quarter: 2012Q1

REPORT INFORMATION
  Report Type: 
  Country: None (occurrence: None)
  Receive Date: 20120227
  Receipt Date: 20110111
  Transmission Date: 20120608
  Serious: No
  Sender: FDA-Public Use
  Company Number: US-MYLANLABS-2011S1000808

PATIENT
  Age: 23 Year
  Sex: Female

DRUGS (2)
  1. ORTHO CYCLEN-28 [Concomitant]
     Indication: ORAL CONTRACEPTION
     Route: 048
     Dates: start: 20100401
  2. AMNESTEEM [Suspect]
     Indication: ACNE
     Route: 048
     Dates: start: 20101223, end: 20110107

REACTIONS (1)
  - BLOOD TRIGLYCERIDES INCREASED [None]
